FAERS Safety Report 17163071 (Version 1)
Quarter: 2019Q4

REPORT INFORMATION
  Report Type: Spontaneous
  Country: US (occurrence: US)
  Receive Date: 20191216
  Receipt Date: 20191216
  Transmission Date: 20200122
  Serious: Yes (Hospitalization)
  Sender: FDA-Public Use
  Company Number: None

PATIENT
  Age: 86 Year
  Sex: Male
  Weight: 73.6 kg

DRUGS (12)
  1. ASPIRIN. [Suspect]
     Active Substance: ASPIRIN
     Indication: CORONARY ARTERY DISEASE
     Route: 048
     Dates: start: 20150613
  2. CLOPIDOGREL [Suspect]
     Active Substance: CLOPIDOGREL BISULFATE
  3. ISOSORBIDE 30MG DAILY [Concomitant]
  4. APIXABAN [Suspect]
     Active Substance: APIXABAN
     Indication: ATRIAL FIBRILLATION
     Route: 048
     Dates: start: 20160218
  5. ASPIRIN. [Suspect]
     Active Substance: ASPIRIN
     Indication: ATRIAL FIBRILLATION
     Route: 048
     Dates: start: 20150613
  6. ATORVASTATIN 40MG DAILY [Concomitant]
  7. RANOLAZINE 1000MG BID [Concomitant]
  8. APIXABAN [Suspect]
     Active Substance: APIXABAN
     Indication: CORONARY ARTERY DISEASE
     Route: 048
     Dates: start: 20160218
  9. FUROSEMIDE 20MG BID [Concomitant]
  10. METOPROLOL TARTRATE 50MG BID [Concomitant]
  11. FERROUS SULFATE 325MG BID [Concomitant]
  12. PANTOPRAZOLE 40MG DAILY [Concomitant]

REACTIONS (6)
  - Chest pain [None]
  - Coronary artery disease [None]
  - Anaemia [None]
  - Dyspnoea [None]
  - Gastrointestinal haemorrhage [None]
  - Packed red blood cell transfusion [None]

NARRATIVE: CASE EVENT DATE: 20160725
